FAERS Safety Report 4748128-0 (Version None)
Quarter: 2005Q3

REPORT INFORMATION
  Report Type: 
  Country: None (occurrence: None)
  Receive Date: 20050818
  Receipt Date: 20050805
  Transmission Date: 20060218
  Serious: Yes (Hospitalization)
  Sender: FDA-Public Use
  Company Number: FR-MERCK-0508FRA00013

PATIENT
  Age: 1 Year
  Sex: Male

DRUGS (2)
  1. PRIMAXIN [Suspect]
     Indication: POSTOPERATIVE INFECTION
     Route: 042
  2. AMIKACIN [Concomitant]
     Indication: POSTOPERATIVE INFECTION
     Route: 042

REACTIONS (2)
  - PATHOGEN RESISTANCE [None]
  - URINARY TRACT INFECTION [None]
